FAERS Safety Report 9604565 (Version 1)
Quarter: 2013Q4

REPORT INFORMATION
  Report Type: Spontaneous
  Country: US (occurrence: US)
  Receive Date: 20131008
  Receipt Date: 20131008
  Transmission Date: 20140711
  Serious: Yes (Other)
  Sender: FDA-Public Use
  Company Number: US-SA-2013SA097026

PATIENT
  Age: 72 Year
  Sex: Male

DRUGS (1)
  1. LOVENOX [Suspect]
     Route: 058

REACTIONS (2)
  - Transient ischaemic attack [Unknown]
  - Deafness [Unknown]
